FAERS Safety Report 10232302 (Version 1)
Quarter: 2014Q2

REPORT INFORMATION
  Report Type: Spontaneous
  Country: US (occurrence: US)
  Receive Date: 20140612
  Receipt Date: 20140612
  Transmission Date: 20141212
  Serious: Yes (Hospitalization, Other)
  Sender: FDA-Public Use
  Company Number: US-ROCHE-1414011

PATIENT
  Age: 54 Year
  Sex: Male

DRUGS (7)
  1. RIBAVIRIN [Suspect]
     Indication: PRODUCT USED FOR UNKNOWN INDICATION
     Route: 048
     Dates: start: 201405
  2. SOVALDI [Suspect]
     Indication: PRODUCT USED FOR UNKNOWN INDICATION
     Route: 048
  3. ZOFRAN [Concomitant]
  4. GABAPENTIN [Concomitant]
  5. ACTOS [Concomitant]
  6. ALDACTONE (UNITED STATES) [Concomitant]
  7. PREVACID [Concomitant]

REACTIONS (6)
  - Renal failure acute [Recovering/Resolving]
  - Malaise [Unknown]
  - Blood iron increased [Unknown]
  - Nausea [Unknown]
  - Blood bilirubin increased [Unknown]
  - Anaemia [Unknown]
